FAERS Safety Report 13912291 (Version 1)
Quarter: 2017Q3

REPORT INFORMATION
  Report Type: Spontaneous
  Country: US (occurrence: US)
  Receive Date: 20170828
  Receipt Date: 20170828
  Transmission Date: 20171127
  Serious: No
  Sender: FDA-Public Use
  Company Number: US-ROCHE-1146851

PATIENT
  Sex: Male

DRUGS (7)
  1. NUTROPIN AQ [Suspect]
     Active Substance: SOMATROPIN
     Indication: CHRONIC KIDNEY DISEASE
     Route: 058
     Dates: start: 20020513
  2. DHT [Concomitant]
     Route: 065
  3. NUTROPIN AQ [Suspect]
     Active Substance: SOMATROPIN
     Indication: AZOTAEMIA
  4. SEPTRA [Concomitant]
     Active Substance: SULFAMETHOXAZOLE\TRIMETHOPRIM
     Dosage: 2 CC
     Route: 065
  5. SODIUM CHLORIDE. [Concomitant]
     Active Substance: SODIUM CHLORIDE
     Route: 065
  6. FERINSOL [Concomitant]
     Route: 065
  7. EPOGEN [Concomitant]
     Active Substance: ERYTHROPOIETIN
     Route: 065

REACTIONS (1)
  - Constipation [Unknown]
